FAERS Safety Report 7394295-2 (Version None)
Quarter: 2011Q1

REPORT INFORMATION
  Report Type: 
  Country: None (occurrence: None)
  Receive Date: 20110325
  Receipt Date: 20110310
  Transmission Date: 20110831
  Serious: Yes (Hospitalization)
  Sender: FDA-Public Use
  Company Number: AUR-APL-2011-00965

PATIENT
  Sex: Female

DRUGS (3)
  1. BETAMETHASONE [Suspect]
     Indication: MATERNAL THERAPY TO ENHANCE FOETAL LUNG MATURITY
     Dosage: 12MG-QD-TRANSPLACENTAL; (3 TRIMESTER)
     Route: 064
  2. METFORMIN [Suspect]
     Indication: GESTATIONAL DIABETES
     Dosage: 500MG-TID-TRANSPLACENTAL; (2ND TRIMESTER)
     Route: 064
  3. INSULIN [Suspect]
     Indication: GESTATIONAL DIABETES
     Dosage: 8DF-QD-TRANSPLACENTAL, 2ND TRIMESTER

REACTIONS (5)
  - POLYHYDRAMNIOS [None]
  - MATERNAL DRUGS AFFECTING FOETUS [None]
  - CAESAREAN SECTION [None]
  - HYPOGLYCAEMIA NEONATAL [None]
  - FOETAL MACROSOMIA [None]
